FAERS Safety Report 5730284-9 (Version None)
Quarter: 2008Q2

REPORT INFORMATION
  Report Type: 
  Country: None (occurrence: None)
  Receive Date: 20080505
  Receipt Date: 20080505
  Transmission Date: 20081010
  Serious: Yes (Other)
  Sender: FDA-Public Use
  Company Number: None

PATIENT
  Age: 77 Year
  Sex: Male
  Weight: 88.905 kg

DRUGS (1)
  1. DIGITEK 0.25MG BERTEK AMIDE [Suspect]
     Indication: CARDIAC FAILURE CONGESTIVE
     Dosage: 1 DAILY PO
     Route: 048
     Dates: start: 20080105, end: 20080415

REACTIONS (4)
  - DIZZINESS [None]
  - NAUSEA [None]
  - THERAPEUTIC AGENT TOXICITY [None]
  - VOMITING [None]
